FAERS Safety Report 8571266-1 (Version None)
Quarter: 2012Q3

REPORT INFORMATION
  Report Type: 
  Country: None (occurrence: None)
  Receive Date: 20120730
  Receipt Date: 20120730
  Transmission Date: 20120928
  Serious: Yes (Hospitalization)
  Sender: FDA-Public Use
  Company Number: None

PATIENT
  Age: 59 Year
  Sex: Male
  Weight: 125 kg

DRUGS (1)
  1. LISINOPRIL [Suspect]
     Indication: HYPERTENSION
     Dosage: 20 MG EVERY DAY PO
     Route: 048
     Dates: start: 20110425

REACTIONS (4)
  - BUNDLE BRANCH BLOCK RIGHT [None]
  - BUNDLE BRANCH BLOCK LEFT [None]
  - RENAL FAILURE ACUTE [None]
  - HYPERKALAEMIA [None]
